FAERS Safety Report 24448777 (Version 1)
Quarter: 2024Q4

REPORT INFORMATION
  Report Type: Spontaneous
  Country: JP (occurrence: JP)
  Receive Date: 20241017
  Receipt Date: 20241017
  Transmission Date: 20250114
  Serious: Yes (Hospitalization, Other)
  Sender: ASTELLAS
  Company Number: JP-ASTELLAS-2024-AER-012095

PATIENT
  Age: 83 Year
  Sex: Male

DRUGS (4)
  1. TACROLIMUS [Suspect]
     Active Substance: TACROLIMUS
     Indication: Idiopathic interstitial pneumonia
     Route: 048
  2. PREDONINE [Concomitant]
     Active Substance: PREDNISOLONE
     Indication: Idiopathic interstitial pneumonia
     Route: 048
  3. AMPHOTERICIN B [Concomitant]
     Active Substance: AMPHOTERICIN B
     Indication: Disseminated cryptococcosis
     Route: 065
  4. FLUCYTOSINE [Concomitant]
     Active Substance: FLUCYTOSINE
     Indication: Disseminated cryptococcosis
     Route: 065

REACTIONS (4)
  - Pneumonia [Unknown]
  - Disseminated cryptococcosis [Unknown]
  - Prostatic abscess [Unknown]
  - Off label use [Unknown]
